FAERS Safety Report 25852618 (Version 2)
Quarter: 2025Q4

REPORT INFORMATION
  Report Type: Spontaneous
  Country: JP (occurrence: JP)
  Receive Date: 20250926
  Receipt Date: 20251210
  Transmission Date: 20260118
  Serious: Yes (Hospitalization, Other)
  Sender: UCB
  Company Number: JP-UCBJ-CD202512479UCBPHAPROD

PATIENT
  Age: 2 Year

DRUGS (2)
  1. FINTEPLA [Suspect]
     Active Substance: FENFLURAMINE
     Indication: Severe myoclonic epilepsy of infancy
     Dosage: 0.1 MILLIGRAM/KILOGRAM/DAY
  2. FINTEPLA [Suspect]
     Active Substance: FENFLURAMINE
     Dosage: 0.36 MILLIGRAM/KILOGRAM/DAY

REACTIONS (3)
  - Tonic convulsion [Recovered/Resolved]
  - Prescribed underdose [Unknown]
  - Off label use [Unknown]
